FAERS Safety Report 9217837 (Version 1)
Quarter: 2013Q2

REPORT INFORMATION
  Report Type: Spontaneous
  Country: FR (occurrence: FR)
  Receive Date: 20130408
  Receipt Date: 20130408
  Transmission Date: 20140414
  Serious: Yes (Hospitalization, Other)
  Sender: FDA-Public Use
  Company Number: FR-ELI_LILLY_AND_COMPANY-FR201303009877

PATIENT
  Age: 72 Year
  Sex: Female

DRUGS (18)
  1. UMULINE [Suspect]
     Indication: TYPE 2 DIABETES MELLITUS
     Dosage: 32 U, QD
     Route: 058
  2. UMULINE [Suspect]
     Dosage: 24 U, QD
  3. LASILIX [Concomitant]
     Dosage: 40 MG, UNKNOWN
  4. SYMBICORT [Concomitant]
     Dosage: UNK, UNKNOWN
  5. PROCORALAN [Concomitant]
     Dosage: UNK, UNKNOWN
  6. IXPRIM [Concomitant]
     Indication: BACK PAIN
     Dosage: 3 DF, QD
     Dates: start: 201205
  7. NORSET [Concomitant]
     Dosage: 15 MG, QD
     Dates: start: 201210
  8. NORSET [Concomitant]
     Dosage: 30 MG, QD
     Dates: start: 201211
  9. ZITHROMAX [Concomitant]
     Indication: LUNG DISORDER
     Dosage: 750 MG, WEEKLY (1/W)
  10. INEXIUM [Concomitant]
     Dosage: UNK, UNKNOWN
  11. ATARAX                             /00058402/ [Concomitant]
     Dosage: UNK, UNKNOWN
  12. EUPHYLLINE [Concomitant]
     Dosage: UNK, UNKNOWN
  13. HYDROCORTISONE [Concomitant]
     Dosage: UNK, UNKNOWN
  14. SERESTA [Concomitant]
     Dosage: UNK, UNKNOWN
  15. PERINDOPRIL [Concomitant]
     Dosage: UNK, UNKNOWN
  16. TRIMEBUTINE [Concomitant]
     Dosage: UNK, UNKNOWN
  17. DIFFU K [Concomitant]
     Dosage: UNK, UNKNOWN
  18. CALCIDOSE [Concomitant]
     Dosage: UNK, UNKNOWN

REACTIONS (2)
  - Convulsion [Recovered/Resolved]
  - Hypoglycaemia [Recovered/Resolved]
